FAERS Safety Report 6900523-7 (Version None)
Quarter: 2010Q3

REPORT INFORMATION
  Report Type: 
  Country: None (occurrence: None)
  Receive Date: 20100803
  Receipt Date: 20100723
  Transmission Date: 20110219
  Serious: Yes (Other)
  Sender: FDA-Public Use
  Company Number: US-JNJFOC-20100707787

PATIENT
  Sex: Female
  Weight: 99.79 kg

DRUGS (10)
  1. REMICADE [Suspect]
     Indication: FIBROMYALGIA
     Route: 042
  2. REMICADE [Suspect]
     Route: 042
  3. REMICADE [Suspect]
     Indication: COLITIS ULCERATIVE
     Route: 042
  4. REMICADE [Suspect]
     Route: 042
  5. REMICADE [Suspect]
     Indication: CROHN'S DISEASE
     Route: 042
  6. REMICADE [Suspect]
     Route: 042
  7. ASACOL [Concomitant]
     Indication: CROHN'S DISEASE
  8. ASACOL [Concomitant]
     Indication: COLITIS ULCERATIVE
  9. ULTRAM [Concomitant]
     Indication: PAIN
  10. IRON [Concomitant]
     Indication: MEDICAL DIET

REACTIONS (9)
  - DEAFNESS [None]
  - EYE ROLLING [None]
  - HAEMORRHAGE [None]
  - HYPERSENSITIVITY [None]
  - INCORRECT DRUG ADMINISTRATION RATE [None]
  - INFUSION RELATED REACTION [None]
  - RESPIRATORY ARREST [None]
  - SYNCOPE [None]
  - UTERINE INFECTION [None]
